FAERS Safety Report 11869625 (Version 1)
Quarter: 2015Q4

REPORT INFORMATION
  Report Type: Other
  Country: US (occurrence: US)
  Receive Date: 20151228
  Receipt Date: 20151228
  Transmission Date: 20160305
  Serious: No
  Sender: FDA-Public Use
  Company Number: US-LUPIN PHARMACEUTICALS INC.-2015-03389

PATIENT

DRUGS (3)
  1. ELETRIPTAN [Suspect]
     Active Substance: ELETRIPTAN
     Indication: PRODUCT USED FOR UNKNOWN INDICATION
     Route: 065
  2. TOPIRAMATE. [Suspect]
     Active Substance: TOPIRAMATE
     Indication: PRODUCT USED FOR UNKNOWN INDICATION
     Route: 065
  3. SELEGILINE [Suspect]
     Active Substance: SELEGILINE
     Indication: PRODUCT USED FOR UNKNOWN INDICATION
     Dosage: 6 MG
     Route: 062

REACTIONS (13)
  - Paraesthesia [Unknown]
  - Migraine [Unknown]
  - Dysacusis [Unknown]
  - Drug interaction [Unknown]
  - Pain in extremity [Unknown]
  - Fatigue [Unknown]
  - Dizziness [Unknown]
  - Muscle spasms [Unknown]
  - Irritability [Unknown]
  - Visual impairment [Unknown]
  - Galactorrhoea [Unknown]
  - Night sweats [Unknown]
  - Polymenorrhoea [Unknown]
